FAERS Safety Report 9306518 (Version 1)
Quarter: 2013Q1

REPORT INFORMATION
  Report Type: Spontaneous
  Country: US (occurrence: None)
  Receive Date: 20130328
  Receipt Date: 20130328
  Transmission Date: 20140127
  Serious: Yes (Death)
  Sender: FDA-Public Use
  Company Number: ALK-2013-001408

PATIENT
  Sex: 0

DRUGS (1)
  1. VIVITROL [Suspect]
     Indication: DRUG DEPENDENCE
     Route: 030
     Dates: start: 20111129

REACTIONS (2)
  - Overdose [None]
  - Drug abuse [None]
